FAERS Safety Report 24205900 (Version 1)
Quarter: 2024Q3

REPORT INFORMATION
  Report Type: Spontaneous
  Country: US (occurrence: None)
  Receive Date: 20240812
  Receipt Date: 20240812
  Transmission Date: 20241016
  Serious: Yes (Life-Threatening)
  Sender: Public
  Company Number: None

PATIENT
  Age: 50 Year
  Sex: Male
  Weight: 100 kg

DRUGS (1)
  1. HERBALS\MUSHROOMS UNSPECIFIED [Suspect]
     Active Substance: HERBALS\MUSHROOMS UNSPECIFIED

REACTIONS (4)
  - Loss of consciousness [None]
  - Seizure like phenomena [None]
  - Hypertension [None]
  - Respiratory failure [None]
